FAERS Safety Report 6863297-4 (Version None)
Quarter: 2010Q3

REPORT INFORMATION
  Report Type: 
  Country: None (occurrence: None)
  Receive Date: 20100721
  Receipt Date: 20100713
  Transmission Date: 20110219
  Serious: Yes (Other)
  Sender: FDA-Public Use
  Company Number: CA-JNJFOC-20100703964

PATIENT
  Age: 18 Year
  Sex: Female

DRUGS (7)
  1. CONCERTA [Suspect]
     Indication: PRODUCT USED FOR UNKNOWN INDICATION
     Route: 048
  2. BIPHENTIN [Suspect]
     Indication: PRODUCT USED FOR UNKNOWN INDICATION
     Route: 048
  3. BIPHENTIN [Suspect]
     Route: 048
  4. BIPHENTIN [Suspect]
     Route: 048
  5. BIPHENTIN [Suspect]
     Route: 048
  6. ORTHO EVRA [Concomitant]
     Route: 062
  7. BACTROBAN [Concomitant]
     Route: 061

REACTIONS (4)
  - AMNESIA [None]
  - DECREASED APPETITE [None]
  - DRUG INEFFECTIVE [None]
  - EDUCATIONAL PROBLEM [None]
